FAERS Safety Report 6237256-9 (Version None)
Quarter: 2009Q2

REPORT INFORMATION
  Report Type: 
  Country: None (occurrence: None)
  Receive Date: 20090619
  Receipt Date: 20090616
  Transmission Date: 20091009
  Serious: Yes (Other)
  Sender: FDA-Public Use
  Company Number: US-RB-016954-09

PATIENT
  Sex: Female

DRUGS (1)
  1. SUBOXONE [Suspect]
     Indication: DRUG USE FOR UNKNOWN INDICATION
     Dosage: PATIENT IS TRYING TO WEAN OFF MEDICATION (DOSING UNKNOWN)
     Route: 065

REACTIONS (2)
  - CRYING [None]
  - SUICIDAL IDEATION [None]
